FAERS Safety Report 18734942 (Version 10)
Quarter: 2021Q2

REPORT INFORMATION
  Report Type: Report from Study
  Country: FR (occurrence: FR)
  Receive Date: 20210113
  Receipt Date: 20210511
  Transmission Date: 20210717
  Serious: Yes (Hospitalization)
  Sender: FDA-Public Use
  Company Number: FR-EISAI MEDICAL RESEARCH-EC-2021-086415

PATIENT
  Age: 42 Year
  Sex: Female
  Weight: 71 kg

DRUGS (10)
  1. LENVATINIB [Suspect]
     Active Substance: LENVATINIB
     Indication: MALIGNANT MELANOMA STAGE III
     Route: 048
     Dates: start: 20200921
  2. ATARAX [Concomitant]
     Active Substance: HYDROXYZINE HYDROCHLORIDE
     Dates: start: 202008
  3. FORLAX [Concomitant]
     Active Substance: POLYETHYLENE GLYCOL 4000
     Dates: start: 20201026
  4. PEMBROLIZUMAB. [Suspect]
     Active Substance: PEMBROLIZUMAB
     Route: 041
     Dates: start: 20210202, end: 20210202
  5. PEMBROLIZUMAB. [Suspect]
     Active Substance: PEMBROLIZUMAB
     Route: 041
     Dates: start: 20210219
  6. ACETAMINOPHEN. [Concomitant]
     Active Substance: ACETAMINOPHEN
     Dates: start: 20200923
  7. LOXEN [Concomitant]
     Dates: start: 20201023
  8. PEMBROLIZUMAB. [Suspect]
     Active Substance: PEMBROLIZUMAB
     Indication: MALIGNANT MELANOMA STAGE IV
     Route: 041
     Dates: start: 20201215, end: 20201215
  9. LENVATINIB [Suspect]
     Active Substance: LENVATINIB
     Indication: MALIGNANT MELANOMA STAGE IV
  10. PEMBROLIZUMAB. [Suspect]
     Active Substance: PEMBROLIZUMAB
     Indication: MALIGNANT MELANOMA STAGE III
     Route: 041
     Dates: start: 20200921, end: 20201124

REACTIONS (3)
  - COVID-19 [Recovered/Resolved with Sequelae]
  - Chronic gastritis [Recovering/Resolving]
  - Pancreatitis [Recovering/Resolving]

NARRATIVE: CASE EVENT DATE: 20201220
